FAERS Safety Report 15679190 (Version 2)
Quarter: 2019Q1

REPORT INFORMATION
  Report Type: Spontaneous
  Country: US (occurrence: US)
  Receive Date: 20181203
  Receipt Date: 20190125
  Transmission Date: 20190417
  Serious: Yes (Other)
  Sender: FDA-Public Use
  Company Number: US-PRINSTON PHARMACEUTICAL INC.-2018PRN01078

PATIENT
  Sex: Female
  Weight: 136.05 kg

DRUGS (5)
  1. ^PURINOL^ [Concomitant]
  2. VALSARTAN AND HYDROCHLOROTHIAZIDE [Suspect]
     Active Substance: HYDROCHLOROTHIAZIDE\VALSARTAN
     Indication: HYPERTENSION
     Dosage: 1 TABLETS, 2X/DAY
     Route: 048
     Dates: end: 2018
  3. MAGNESIUM [Concomitant]
     Active Substance: MAGNESIUM
  4. POTASSIUM [Concomitant]
     Active Substance: POTASSIUM
  5. SIX UNSPECIFIED MEDICATIONS FOR BLOOD PRESSURE [Concomitant]

REACTIONS (9)
  - Macule [Not Recovered/Not Resolved]
  - Sensory disturbance [Recovered/Resolved]
  - Squamous cell carcinoma of skin [Recovering/Resolving]
  - Goitre [Recovered/Resolved]
  - Actinic keratosis [Recovering/Resolving]
  - Muscle spasms [Recovered/Resolved]
  - Viral infection [Not Recovered/Not Resolved]
  - Pain [Recovered/Resolved]
  - Hypoaesthesia [Recovered/Resolved]

NARRATIVE: CASE EVENT DATE: 2016
